FAERS Safety Report 18011302 (Version 1)
Quarter: 2020Q3

REPORT INFORMATION
  Report Type: Spontaneous
  Country: CA (occurrence: CA)
  Receive Date: 20200712
  Receipt Date: 20200712
  Transmission Date: 20201103
  Serious: Yes (Hospitalization, Other)
  Sender: FDA-Public Use
  Company Number: CA-TEVA-2020-CA-1798204

PATIENT
  Age: 46 Year
  Sex: Female

DRUGS (4)
  1. PACLITAXEL FOR INJECTION [Suspect]
     Active Substance: PACLITAXEL
  2. AVASTIN [Suspect]
     Active Substance: BEVACIZUMAB
     Route: 065
  3. DALTEPARIN [Concomitant]
     Active Substance: DALTEPARIN
  4. CARBOPLATIN INJECTION BP [Suspect]
     Active Substance: CARBOPLATIN

REACTIONS (1)
  - Febrile neutropenia [Recovering/Resolving]
